FAERS Safety Report 17987798 (Version 3)
Quarter: 2020Q3

REPORT INFORMATION
  Report Type: Spontaneous
  Country: DE (occurrence: DE)
  Receive Date: 20200707
  Receipt Date: 20200924
  Transmission Date: 20201103
  Serious: Yes (Hospitalization, Other)
  Sender: FDA-Public Use
  Company Number: DE-BRISTOL-MYERS SQUIBB COMPANY-BMS-2020-035642

PATIENT
  Age: 86 Year
  Sex: Male
  Weight: 76 kg

DRUGS (3)
  1. HEPARIN [Suspect]
     Active Substance: HEPARIN SODIUM
     Indication: PRODUCT USED FOR UNKNOWN INDICATION
     Dosage: UNK
     Route: 065
  2. METOPROLOL. [Concomitant]
     Active Substance: METOPROLOL
     Indication: PRODUCT USED FOR UNKNOWN INDICATION
     Dosage: 12.5 MILLIGRAM, QD
     Route: 065
  3. ELIQUIS [Suspect]
     Active Substance: APIXABAN
     Indication: CEREBROVASCULAR ACCIDENT PROPHYLAXIS
     Dosage: 5 MILLIGRAM, BID
     Route: 048
     Dates: start: 201911

REACTIONS (11)
  - Skin discolouration [Unknown]
  - Hernia [Unknown]
  - Arthropod bite [Unknown]
  - Peripheral swelling [Recovered/Resolved]
  - Arthropod sting [Unknown]
  - Pain in extremity [Unknown]
  - Post procedural haemorrhage [Unknown]
  - Increased tendency to bruise [Unknown]
  - Eye pruritus [Unknown]
  - Polyuria [Unknown]
  - Pruritus [Unknown]

NARRATIVE: CASE EVENT DATE: 2020
